FAERS Safety Report 25195100 (Version 5)
Quarter: 2025Q3

REPORT INFORMATION
  Report Type: Report from Study
  Country: US (occurrence: US)
  Receive Date: 20250415
  Receipt Date: 20250909
  Transmission Date: 20251020
  Serious: Yes (Other)
  Sender: ABBVIE
  Company Number: US-ABBVIE-6230447

PATIENT
  Age: 73 Year
  Sex: Female

DRUGS (4)
  1. VENCLEXTA [Suspect]
     Active Substance: VENETOCLAX
     Indication: Acute leukaemia
     Dosage: LAST ADMIN DATE 2025
     Route: 048
     Dates: start: 202503
  2. VENCLEXTA [Suspect]
     Active Substance: VENETOCLAX
     Indication: Acute leukaemia
     Route: 048
     Dates: start: 2025, end: 2025
  3. VENCLEXTA [Suspect]
     Active Substance: VENETOCLAX
     Indication: Acute leukaemia
     Dosage: TAKING FIVE 10 MG VENCLEXTA ONCE DAILY FOR 14 DAYS
     Route: 048
     Dates: start: 2025
  4. VENCLEXTA [Suspect]
     Active Substance: VENETOCLAX
     Indication: Acute leukaemia
     Dosage: TAKING FIVE 10 MG VENCLEXTA ONCE DAILY FOR 14 DAYS
     Route: 048
     Dates: start: 20250325

REACTIONS (17)
  - Transfusion [Unknown]
  - Incontinence [Unknown]
  - Hypoaesthesia [Unknown]
  - Balance disorder [Unknown]
  - Red blood cell count decreased [Recovering/Resolving]
  - Skin irritation [Recovering/Resolving]
  - Eye irritation [Recovering/Resolving]
  - Anxiety [Recovered/Resolved]
  - Arthritis [Unknown]
  - Joint injury [Unknown]
  - Contusion [Unknown]
  - Constipation [Not Recovered/Not Resolved]
  - Fall [Unknown]
  - Foot fracture [Unknown]
  - White blood cell count decreased [Recovering/Resolving]
  - Muscle spasms [Recovered/Resolved]
  - Biopsy bone marrow abnormal [Unknown]

NARRATIVE: CASE EVENT DATE: 20250101
